FAERS Safety Report 17907984 (Version 1)
Quarter: 2020Q2

REPORT INFORMATION
  Report Type: Spontaneous
  Country: CA (occurrence: CA)
  Receive Date: 20200617
  Receipt Date: 20200617
  Transmission Date: 20200714
  Serious: Yes (Other)
  Sender: FDA-Public Use
  Company Number: NVSC2020CA165100

PATIENT
  Age: 68 Year
  Sex: Female

DRUGS (3)
  1. TOBREX [Suspect]
     Active Substance: TOBRAMYCIN
     Dosage: UNK, Q2W
     Route: 047
  2. TOBREX [Suspect]
     Active Substance: TOBRAMYCIN
     Indication: EYE INFECTION
     Dosage: UNK, Q4W (STRENGTH: 3 MG/GM)
     Route: 047
  3. RIVAROXABAN [Concomitant]
     Active Substance: RIVAROXABAN
     Indication: PRODUCT USED FOR UNKNOWN INDICATION
     Dosage: UNK
     Route: 065

REACTIONS (19)
  - Dermatochalasis [Unknown]
  - Swelling of eyelid [Unknown]
  - Asthenopia [Unknown]
  - Muscle twitching [Unknown]
  - Ocular discomfort [Unknown]
  - Skin exfoliation [Unknown]
  - Swelling face [Unknown]
  - Eye pain [Unknown]
  - Dyspnoea [Unknown]
  - Product label issue [Unknown]
  - Eyelids pruritus [Unknown]
  - Eye movement disorder [Unknown]
  - Hypoaesthesia [Unknown]
  - Anxiety [Unknown]
  - Sinus pain [Unknown]
  - Skin discolouration [Unknown]
  - Visual impairment [Unknown]
  - Hypersensitivity [Unknown]
  - Dry skin [Unknown]
